FAERS Safety Report 15467915 (Version 8)
Quarter: 2019Q4

REPORT INFORMATION
  Report Type: Spontaneous
  Country: US (occurrence: US)
  Receive Date: 20181005
  Receipt Date: 20191224
  Transmission Date: 20200122
  Serious: Yes (Hospitalization)
  Sender: FDA-Public Use
  Company Number: US-SA-2018SA270697

PATIENT
  Age: 72 Year
  Sex: Female

DRUGS (2)
  1. DUPIXENT [Suspect]
     Active Substance: DUPILUMAB
     Indication: PRODUCT USED FOR UNKNOWN INDICATION
     Dosage: 300 MG, QOW
     Route: 058
  2. DUPIXENT [Suspect]
     Active Substance: DUPILUMAB
     Indication: DERMATITIS ATOPIC
     Dosage: 600 MG, 1X
     Route: 058
     Dates: start: 201802, end: 201802

REACTIONS (6)
  - Foot operation [Unknown]
  - Nasopharyngitis [Unknown]
  - Intentional product misuse [Unknown]
  - Limb injury [Unknown]
  - Hip arthroplasty [Unknown]
  - Localised infection [Unknown]

NARRATIVE: CASE EVENT DATE: 2018
